FAERS Safety Report 25546624 (Version 1)
Quarter: 2025Q3

REPORT INFORMATION
  Report Type: Spontaneous
  Country: CN (occurrence: CN)
  Receive Date: 20250713
  Receipt Date: 20250713
  Transmission Date: 20251021
  Serious: Yes (Hospitalization)
  Sender: JOHNSON AND JOHNSON
  Company Number: CN-JNJFOC-20250713570

PATIENT
  Age: 92 Year
  Sex: Male

DRUGS (5)
  1. XARELTO [Suspect]
     Active Substance: RIVAROXABAN
     Indication: Atrial fibrillation
     Dosage: 15 MG, QD
     Route: 048
     Dates: start: 202506, end: 20250701
  2. ATORVASTATIN CALCIUM [Concomitant]
     Active Substance: ATORVASTATIN CALCIUM
     Indication: Product used for unknown indication
     Dosage: 10 MG, QD
     Route: 048
  3. Shen song yang xin [Concomitant]
     Indication: Product used for unknown indication
     Dosage: 1.28 G, TID
     Route: 048
  4. LEVAMLODIPINE BESYLATE [Concomitant]
     Active Substance: LEVAMLODIPINE BESYLATE
     Indication: Product used for unknown indication
     Dosage: 2.5 MG, QD
     Route: 048
  5. BISOPROLOL FUMARATE [Concomitant]
     Active Substance: BISOPROLOL FUMARATE
     Indication: Product used for unknown indication
     Dosage: 2.5 MG, QD
     Route: 048

REACTIONS (20)
  - Altered state of consciousness [Unknown]
  - Cognitive disorder [Unknown]
  - Disorganised speech [Unknown]
  - Loss of consciousness [Recovered/Resolved]
  - Unresponsive to stimuli [Recovered/Resolved]
  - Heart rate increased [Unknown]
  - Respiratory rate increased [Unknown]
  - Blood pressure decreased [Unknown]
  - Oxygen saturation decreased [Unknown]
  - General physical health deterioration [Unknown]
  - Depressed mood [Unknown]
  - Incoherent [Unknown]
  - Dyspnoea [Unknown]
  - International normalised ratio increased [Unknown]
  - Thrombin time shortened [Unknown]
  - Prothrombin time prolonged [Unknown]
  - Activated partial thromboplastin time prolonged [Unknown]
  - Fibrin D dimer increased [Unknown]
  - Ecchymosis [Recovering/Resolving]
  - Skin haemorrhage [Recovering/Resolving]

NARRATIVE: CASE EVENT DATE: 20250629
